FAERS Safety Report 6595651-2 (Version None)
Quarter: 2010Q1

REPORT INFORMATION
  Report Type: 
  Country: None (occurrence: None)
  Receive Date: 20100222
  Receipt Date: 20100222
  Transmission Date: 20100710
  Serious: Yes (Other)
  Sender: FDA-Public Use
  Company Number: None

PATIENT
  Sex: Female
  Weight: 72.5755 kg

DRUGS (2)
  1. TOPAMAX [Suspect]
     Indication: EPILEPSY
     Dosage: WANTED ME TO TAKE IT 3X DAY ONLY TOOK 125MG X2 TOOK 300MG 2 WKS ONLY
     Dates: start: 20050801, end: 20100110
  2. TOPAMAX [Suspect]
     Indication: MIGRAINE
     Dosage: WANTED ME TO TAKE IT 3X DAY ONLY TOOK 125MG X2 TOOK 300MG 2 WKS ONLY
     Dates: start: 20050801, end: 20100110

REACTIONS (10)
  - AGITATION [None]
  - FEAR [None]
  - HYPOPHAGIA [None]
  - INSOMNIA [None]
  - NAUSEA [None]
  - NERVOUSNESS [None]
  - PALPITATIONS [None]
  - PARANOIA [None]
  - SALIVARY HYPERSECRETION [None]
  - TREMOR [None]
